FAERS Safety Report 7879998 (Version 2)
Quarter: 2013Q3

REPORT INFORMATION
  Report Type: Report from Study
  Country: JP (occurrence: JP)
  Receive Date: 20110331
  Receipt Date: 20130808
  Transmission Date: 20140515
  Serious: Yes (Hospitalization, Other)
  Sender: FDA-Public Use
  Company Number: JP-ASTRAZENECA-2011SE11286

PATIENT
  Age: 30096 Day
  Sex: Male
  Weight: 65 kg

DRUGS (5)
  1. IRESSA [Suspect]
     Indication: LUNG ADENOCARCINOMA RECURRENT
     Route: 048
     Dates: start: 20110221, end: 20110224
  2. IRESSA [Suspect]
     Indication: NON-SMALL CELL LUNG CANCER
     Route: 048
     Dates: start: 20110221, end: 20110224
  3. BEZATOL SR [Concomitant]
     Indication: HYPERLIPIDAEMIA
     Route: 048
  4. URIEF [Concomitant]
     Indication: BENIGN PROSTATIC HYPERPLASIA
     Route: 048
  5. OLMETEC [Concomitant]
     Indication: HYPERTENSION
     Route: 048
     Dates: start: 20110218

REACTIONS (2)
  - Lung disorder [Recovered/Resolved]
  - Interstitial lung disease [Unknown]
